FAERS Safety Report 6804650-4 (Version None)
Quarter: 2010Q2

REPORT INFORMATION
  Report Type: 
  Country: None (occurrence: None)
  Receive Date: 20100628
  Receipt Date: 20070519
  Transmission Date: 20101027
  Serious: Yes (Other)
  Sender: FDA-Public Use
  Company Number: US-PFIZER INC-2007021168

PATIENT
  Sex: Female
  Weight: 70.8 kg

DRUGS (4)
  1. GEODON [Suspect]
     Indication: AUTISM
     Dates: start: 20050405
  2. GEODON [Suspect]
     Indication: ATTENTION DEFICIT/HYPERACTIVITY DISORDER
  3. BENADRYL [Suspect]
     Dates: start: 20060928
  4. CONCERTA [Concomitant]

REACTIONS (5)
  - COUGH [None]
  - DRUG INEFFECTIVE [None]
  - DYSPHONIA [None]
  - HYPERSENSITIVITY [None]
  - SPEECH DISORDER [None]
